FAERS Safety Report 17420374 (Version 4)
Quarter: 2021Q1

REPORT INFORMATION
  Report Type: Spontaneous
  Country: US (occurrence: US)
  Receive Date: 20200214
  Receipt Date: 20210120
  Transmission Date: 20210419
  Serious: Yes (Hospitalization)
  Sender: FDA-Public Use
  Company Number: US-TEVA-2020-US-1186083

PATIENT
  Age: 54 Year
  Sex: Female

DRUGS (30)
  1. PANTOPRAZOLE [Concomitant]
     Active Substance: PANTOPRAZOLE
     Dates: start: 20190624, end: 20200322
  2. METOPROL TAR [Concomitant]
     Dates: start: 20191101, end: 20200429
  3. HYDROCO/APAP [Concomitant]
     Active Substance: ACETAMINOPHEN\HYDROCODONE
     Dosage: HYDROCO/APAP TAB 5?325MG
     Dates: start: 20200111, end: 20200311
  4. POTASSIUM [Concomitant]
     Active Substance: POTASSIUM
     Dates: start: 20200207
  5. HUMALOG [Concomitant]
     Active Substance: INSULIN LISPRO
     Dates: start: 20191102, end: 20200430
  6. METHIMAZOLE. [Concomitant]
     Active Substance: METHIMAZOLE
     Dates: start: 20191202, end: 20200530
  7. CLOPIDOGREL [Concomitant]
     Active Substance: CLOPIDOGREL BISULFATE
     Dates: start: 20190908, end: 20200306
  8. HUMALOG [Concomitant]
     Active Substance: INSULIN LISPRO
     Dates: start: 20200122, end: 20200501
  9. HUMALOG [Concomitant]
     Active Substance: INSULIN LISPRO
     Dates: start: 20200124, end: 20200710
  10. COPAXONE [Suspect]
     Active Substance: GLATIRAMER ACETATE
     Indication: MULTIPLE SCLEROSIS
     Route: 058
     Dates: start: 20180320
  11. METOPROL TAR [Concomitant]
     Dates: start: 20200130, end: 20200728
  12. LOSARTAN. [Concomitant]
     Active Substance: LOSARTAN
     Dates: start: 20191206, end: 20200603
  13. LASIX [Concomitant]
     Active Substance: FUROSEMIDE
     Dates: start: 20190515
  14. METOPROL TAR [Concomitant]
     Dates: start: 20200130, end: 20200802
  15. INSULIN SYRG [Concomitant]
     Dosage: INSULIN SYRG MIS 1 ML/29G
     Dates: start: 20191106, end: 20200504
  16. TIZANIDINE. [Concomitant]
     Active Substance: TIZANIDINE
     Route: 065
  17. HUMULIN N INJ U?100 [Concomitant]
     Dates: start: 20180502
  18. HUMULIN N INJ U?100 [Concomitant]
     Dosage: HUMULIN N INJ U?100
     Dates: start: 20190722, end: 20200502
  19. METHIMAZOLE. [Concomitant]
     Active Substance: METHIMAZOLE
     Dates: start: 20190626, end: 20200322
  20. INSULIN SYRG [Concomitant]
     Dosage: INSULIN SYRG MIS 0.5/31 G
     Dates: start: 20191111, end: 20200510
  21. AMPYRA [Concomitant]
     Active Substance: DALFAMPRIDINE
  22. FUROSEMIDE. [Concomitant]
     Active Substance: FUROSEMIDE
     Dates: start: 20200122, end: 20200322
  23. METOPROL TAR [Concomitant]
     Dates: start: 20190808, end: 20200429
  24. CLOPIDOGREL [Concomitant]
     Active Substance: CLOPIDOGREL BISULFATE
     Dates: start: 20190910, end: 20200308
  25. VITAMIN D [Concomitant]
     Active Substance: VITAMIN D NOS
     Dosage: VITAMIND CAP 400UNIT
     Dates: start: 20190515
  26. PANTOPRAZOLE [Concomitant]
     Active Substance: PANTOPRAZOLE
     Dates: start: 20191229, end: 20200626
  27. PANTOPRAZOLE [Concomitant]
     Active Substance: PANTOPRAZOLE
     Dates: start: 20200102, end: 20200630
  28. CLOPIDOGREL [Concomitant]
     Active Substance: CLOPIDOGREL BISULFATE
     Dates: start: 20191216, end: 20200614
  29. MAGNESIUM [Concomitant]
     Active Substance: MAGNESIUM
     Route: 065
  30. NOVOLOG [Concomitant]
     Active Substance: INSULIN ASPART
     Route: 065

REACTIONS (5)
  - Movement disorder [Not Recovered/Not Resolved]
  - Gait disturbance [Unknown]
  - Insomnia [Not Recovered/Not Resolved]
  - Peripheral swelling [Not Recovered/Not Resolved]
  - Fatigue [Not Recovered/Not Resolved]

NARRATIVE: CASE EVENT DATE: 202010
